FAERS Safety Report 13091993 (Version 1)
Quarter: 2017Q1

REPORT INFORMATION
  Report Type: Report from Study
  Country: ES (occurrence: ES)
  Receive Date: 20170106
  Receipt Date: 20170106
  Transmission Date: 20170428
  Serious: Yes (Death, Other)
  Sender: FDA-Public Use
  Company Number: ES-ROCHE-1874175

PATIENT

DRUGS (5)
  1. RIBAVIRIN. [Suspect]
     Active Substance: RIBAVIRIN
     Indication: HEPATITIS C
     Dosage: WEIGHT BASED (1000 MG DAILY FOR PATIENTS {75 KG AND 1200 MG DAILY FOR PATIENTS }/= 75 KG).
     Route: 065
  2. RITONAVIR. [Suspect]
     Active Substance: RITONAVIR
     Indication: HEPATITIS C
     Route: 065
  3. OMBITASVIR [Suspect]
     Active Substance: OMBITASVIR
     Indication: HEPATITIS C
     Route: 065
  4. DASABUVIR [Suspect]
     Active Substance: DASABUVIR
     Indication: HEPATITIS C
     Route: 065
  5. PARITAPREVIR [Suspect]
     Active Substance: PARITAPREVIR
     Indication: HEPATITIS C
     Route: 065

REACTIONS (14)
  - Bleeding varicose vein [Fatal]
  - Fatigue [Unknown]
  - Hepatic failure [Unknown]
  - Skin disorder [Unknown]
  - Ascites [Unknown]
  - Hyperbilirubinaemia [Unknown]
  - Abscess [Unknown]
  - Mental disorder [Unknown]
  - Gastrointestinal disorder [Unknown]
  - Hepatic encephalopathy [Fatal]
  - Pneumonia [Unknown]
  - Cardiovascular disorder [Unknown]
  - Acute hepatic failure [Fatal]
  - Anaemia [Unknown]
